FAERS Safety Report 6999982-3 (Version None)
Quarter: 2010Q3

REPORT INFORMATION
  Report Type: 
  Country: None (occurrence: None)
  Receive Date: 20100902
  Receipt Date: 20091026
  Transmission Date: 20110219
  Serious: Yes (Other)
  Sender: FDA-Public Use
  Company Number: 213269USA

PATIENT
  Age: 56 Year
  Sex: Female

DRUGS (3)
  1. METOCLOPRAMIDE [Suspect]
     Indication: IRRITABLE BOWEL SYNDROME
     Dosage: (2 IN 1 D), ORAL
     Route: 048
     Dates: start: 20090904, end: 20090907
  2. MORPHINE [Concomitant]
  3. LORATADINE [Concomitant]

REACTIONS (11)
  - GAIT DISTURBANCE [None]
  - HYPOAESTHESIA ORAL [None]
  - LIP DISORDER [None]
  - LIP SWELLING [None]
  - MUSCLE RIGIDITY [None]
  - MUSCLE SPASMS [None]
  - ORAL DYSAESTHESIA [None]
  - PROTRUSION TONGUE [None]
  - SPEECH DISORDER [None]
  - SWOLLEN TONGUE [None]
  - TREMOR [None]
